FAERS Safety Report 10787898 (Version 1)
Quarter: 2015Q1

REPORT INFORMATION
  Report Type: Spontaneous
  Country: US (occurrence: US)
  Receive Date: 20150212
  Receipt Date: 20150212
  Transmission Date: 20150721
  Serious: No
  Sender: FDA-Public Use
  Company Number: US-GLAXOSMITHKLINE-A0867998A

PATIENT

DRUGS (1)
  1. AVANDIA [Suspect]
     Active Substance: ROSIGLITAZONE MALEATE
     Indication: DIABETES MELLITUS
     Route: 048
     Dates: start: 20061019, end: 20080210

REACTIONS (4)
  - Renal disorder [Not Recovered/Not Resolved]
  - Nephrosclerosis [Unknown]
  - Chronic kidney disease [Unknown]
  - Renal injury [Unknown]
